FAERS Safety Report 8837237 (Version 1)
Quarter: 2012Q4

REPORT INFORMATION
  Report Type: Spontaneous
  Country: US (occurrence: None)
  Receive Date: 20121011
  Receipt Date: 20121011
  Transmission Date: 20130627
  Serious: Yes (Death)
  Sender: FDA-Public Use
  Company Number: None

PATIENT
  Age: 53 Year
  Sex: Male
  Weight: 72.58 kg

DRUGS (2)
  1. TARCEVA [Suspect]
     Indication: NON-SMALL CELL LUNG CANCER
     Dosage: one
     Route: 048
     Dates: start: 20120627, end: 20120811
  2. TARCEVA [Concomitant]

REACTIONS (6)
  - Swelling [None]
  - Abasia [None]
  - Rash [None]
  - Non-small cell lung cancer metastatic [None]
  - Malignant neoplasm progression [None]
  - Multi-organ failure [None]
